FAERS Safety Report 9516890 (Version 1)
Quarter: 2013Q1

REPORT INFORMATION
  Report Type: Spontaneous
  Country: US (occurrence: None)
  Receive Date: 20130305
  Receipt Date: 20130305
  Transmission Date: 20140127
  Serious: Yes (Other)
  Sender: FDA-Public Use
  Company Number: 163-21880-12011141

PATIENT
  Age: 55 Year
  Sex: Male
  Weight: 90.72 kg

DRUGS (1)
  1. REVLIMID (LENLIDOMIDE) (10 MILLIGRAM, CAPSULES) [Suspect]
     Indication: LYMPHOCYTIC LEUKAEMIA
     Route: 048
     Dates: start: 201106

REACTIONS (2)
  - Tumour flare [None]
  - Nausea [None]
